FAERS Safety Report 5127111-X (Version None)
Quarter: 2006Q4

REPORT INFORMATION
  Report Type: 
  Country: None (occurrence: None)
  Receive Date: 20061013
  Receipt Date: 20061004
  Transmission Date: 20070319
  Serious: Yes (Hospitalization)
  Sender: FDA-Public Use
  Company Number: FR-SANOFI-SYNTHELABO-A02200602511

PATIENT
  Age: 46 Year
  Sex: Male

DRUGS (5)
  1. SUBUTEX [Suspect]
     Indication: DRUG USE FOR UNKNOWN INDICATION
     Route: 060
  2. RIFATER [Suspect]
     Indication: TUBERCULOSIS
     Dosage: RIFAMPICINE: 120 MG+ISONIAZIDE:50 MG + PYRAZINAMIDE:300 MG
     Route: 048
     Dates: start: 20060403
  3. COMBIVIR [Suspect]
     Indication: HIV INFECTION
     Dosage: LAMIVUDINE:150 MG+ZIDOVUDINE:300 MG
     Route: 048
     Dates: end: 20060619
  4. SUSTIVA [Suspect]
     Indication: HIV INFECTION
     Route: 048
  5. ZOLPIDEM TARTRATE [Suspect]
     Indication: DRUG USE FOR UNKNOWN INDICATION
     Route: 048

REACTIONS (1)
  - BICYTOPENIA [None]
